FAERS Safety Report 4414383-X (Version None)
Quarter: 2004Q3

REPORT INFORMATION
  Report Type: 
  Country: None (occurrence: None)
  Receive Date: 20040701
  Receipt Date: 20030512
  Transmission Date: 20050211
  Serious: Yes (Other)
  Sender: FDA-Public Use
  Company Number: VISP-PR-0305S-0148(0)

PATIENT
  Age: 60 Year
  Sex: Male

DRUGS (3)
  1. VISIPAQUE [Suspect]
     Indication: DRUG USE FOR UNKNOWN INDICATION
     Dosage: 75 ML, SINGLE DOSE, CORONARY
     Dates: start: 20030509, end: 20030509
  2. HEPARIN SODIUM (HEPARIN) [Concomitant]
  3. TISSUE PLASMINOGEN ACTIVATOR (TPA) [Concomitant]

REACTIONS (1)
  - ANAPHYLACTIC REACTION [None]
